FAERS Safety Report 8777861 (Version 1)
Quarter: 2012Q4

REPORT INFORMATION
  Report Type: 
  Country: BD (occurrence: BD)
  Receive Date: 20120912
  Receipt Date: 20120912
  Transmission Date: 20130627
  Serious: Yes (Death)
  Sender: FDA-Public Use
  Company Number: PHHY2012BD078855

PATIENT
  Age: 107 Year
  Sex: Female

DRUGS (2)
  1. ACLASTA [Suspect]
     Indication: OSTEOPOROSIS
     Dosage: 5 mg in 100 ml solution
     Route: 042
     Dates: start: 20091014
  2. IBANDRONIC ACID [Concomitant]
     Indication: OSTEOPOROSIS
     Dosage: 150 mg, UNK
     Route: 048

REACTIONS (4)
  - General physical health deterioration [Fatal]
  - Gait disturbance [Fatal]
  - Asthenia [Fatal]
  - Bedridden [None]
